FAERS Safety Report 8380866-3 (Version None)
Quarter: 2012Q2

REPORT INFORMATION
  Report Type: 
  Country: None (occurrence: None)
  Receive Date: 20120523
  Receipt Date: 20120516
  Transmission Date: 20120825
  Serious: Yes (Hospitalization, Disabling)
  Sender: FDA-Public Use
  Company Number: US-MERCK-1203USA03334

PATIENT
  Age: 67 Year
  Sex: Female

DRUGS (5)
  1. FOSAMAX [Suspect]
     Indication: OSTEOPENIA
     Route: 048
     Dates: start: 20040701, end: 20091001
  2. FOSAMAX [Suspect]
     Indication: OSTEOPOROSIS
     Route: 048
     Dates: start: 20040701, end: 20091001
  3. FOSAMAX [Suspect]
     Route: 048
     Dates: start: 20091001
  4. FOSAMAX PLUS D [Suspect]
     Indication: OSTEOPOROSIS
     Route: 048
  5. CALCIUM (UNSPECIFIED) [Concomitant]
     Indication: ROUTINE HEALTH MAINTENANCE
     Route: 048

REACTIONS (23)
  - FEMUR FRACTURE [None]
  - FLUID RETENTION [None]
  - MYOFASCIAL PAIN SYNDROME [None]
  - OSTEOPOROSIS [None]
  - OEDEMA [None]
  - GLUCOSE TOLERANCE IMPAIRED [None]
  - BLOOD GLUCOSE ABNORMAL [None]
  - STRESS FRACTURE [None]
  - VERTIGO [None]
  - RIB FRACTURE [None]
  - HYPERTENSION [None]
  - AXILLARY PAIN [None]
  - CATARACT [None]
  - HYPERCHOLESTEROLAEMIA [None]
  - SUPRAVENTRICULAR TACHYCARDIA [None]
  - BURSITIS [None]
  - SCOLIOSIS [None]
  - OSTEOARTHRITIS [None]
  - LOW TURNOVER OSTEOPATHY [None]
  - SPINAL OSTEOARTHRITIS [None]
  - PAIN [None]
  - BLOOD CHOLESTEROL INCREASED [None]
  - BIPOLAR DISORDER [None]
